FAERS Safety Report 4448335-0 (Version None)
Quarter: 2004Q3

REPORT INFORMATION
  Report Type: 
  Country: None (occurrence: None)
  Receive Date: 20040909
  Receipt Date: 20040819
  Transmission Date: 20050211
  Serious: Yes (Other)
  Sender: FDA-Public Use
  Company Number: 2004231478GB

PATIENT
  Age: 60 Year
  Sex: Female
  Weight: 60 kg

DRUGS (3)
  1. BEXTRA [Suspect]
     Indication: POST PROCEDURAL PAIN
     Dosage: 10 MG, QD, ORAL
     Route: 048
     Dates: start: 20040301, end: 20040306
  2. THYROXIN (LEVOTHYROXINE SODIUM) [Concomitant]
  3. CO-DYDRAMOL (DIHYDROCODEINE BITARTRATE) [Concomitant]

REACTIONS (5)
  - CHILLS [None]
  - FEELING ABNORMAL [None]
  - FEELING HOT AND COLD [None]
  - RASH MACULAR [None]
  - RASH PRURITIC [None]
